FAERS Safety Report 24088264 (Version 1)
Quarter: 2024Q3

REPORT INFORMATION
  Report Type: Spontaneous
  Country: FR (occurrence: FR)
  Receive Date: 20240715
  Receipt Date: 20240715
  Transmission Date: 20241017
  Serious: Yes (Hospitalization)
  Sender: ORGANON
  Company Number: None

PATIENT
  Age: 86 Year
  Sex: Female
  Weight: 58 kg

DRUGS (15)
  1. MIRTAZAPINE [Suspect]
     Active Substance: MIRTAZAPINE
     Indication: Depression
     Dosage: 15 MILLIGRAM, QD (ORODISPERSIBLE TABLET)
     Route: 048
     Dates: start: 20240507
  2. CYMBALTA [Suspect]
     Active Substance: DULOXETINE HYDROCHLORIDE
     Indication: Depression
     Dosage: 30 MILLIGRAM, QD (GASTRORESISTANT CAPSULE)
     Route: 048
     Dates: start: 20240507, end: 20240508
  3. CYMBALTA [Suspect]
     Active Substance: DULOXETINE HYDROCHLORIDE
     Dosage: 30 MILLIGRAM, QD (GASTRORESISTANT CAPSULE)
     Route: 048
     Dates: start: 20240510
  4. IPRATROPIUM BROMIDE\FENOTEROL HYDROBROMIDE [Suspect]
     Active Substance: FENOTEROL HYDROBROMIDE\IPRATROPIUM BROMIDE
     Indication: Chronic obstructive pulmonary disease
     Dosage: 2 DOSAGE FORM, QD (SUSPENSION FOR INHALATION IN PRESSURIZED BOTTLE)
     Dates: start: 20240506, end: 20240506
  5. IPRATROPIUM BROMIDE\FENOTEROL HYDROBROMIDE [Suspect]
     Active Substance: FENOTEROL HYDROBROMIDE\IPRATROPIUM BROMIDE
     Dosage: 6 DOSAGE FORM, QD (SUSPENSION FOR INHALATION IN PRESSURIZED BOTTLE)
     Dates: start: 20240507, end: 20240508
  6. IPRATROPIUM BROMIDE\FENOTEROL HYDROBROMIDE [Suspect]
     Active Substance: FENOTEROL HYDROBROMIDE\IPRATROPIUM BROMIDE
     Dosage: 2 DOSAGE FORM, QD (SUSPENSION FOR INHALATION IN PRESSURIZED BOTTLE)
     Dates: start: 20240509, end: 20240509
  7. IPRATROPIUM BROMIDE\FENOTEROL HYDROBROMIDE [Suspect]
     Active Substance: FENOTEROL HYDROBROMIDE\IPRATROPIUM BROMIDE
     Dosage: 4 DOSAGE FORM, QD (SUSPENSION FOR INHALATION IN PRESSURIZED BOTTLE)
     Dates: start: 20240510, end: 20240510
  8. IPRATROPIUM BROMIDE\FENOTEROL HYDROBROMIDE [Suspect]
     Active Substance: FENOTEROL HYDROBROMIDE\IPRATROPIUM BROMIDE
     Dosage: 2 DOSAGE FORM, QD (SUSPENSION FOR INHALATION IN PRESSURIZED BOTTLE)
     Dates: start: 20240511, end: 20240512
  9. IPRATROPIUM BROMIDE\FENOTEROL HYDROBROMIDE [Suspect]
     Active Substance: FENOTEROL HYDROBROMIDE\IPRATROPIUM BROMIDE
     Dosage: 6 DOSAGE FORM, QD (SUSPENSION FOR INHALATION IN PRESSURIZED BOTTLE)
     Dates: start: 20240513, end: 20240513
  10. IPRATROPIUM BROMIDE\FENOTEROL HYDROBROMIDE [Suspect]
     Active Substance: FENOTEROL HYDROBROMIDE\IPRATROPIUM BROMIDE
     Dosage: 4 DOSAGE FORM, QD (SUSPENSION FOR INHALATION IN PRESSURIZED BOTTLE)
     Dates: start: 20240514, end: 20240514
  11. IPRATROPIUM BROMIDE\FENOTEROL HYDROBROMIDE [Suspect]
     Active Substance: FENOTEROL HYDROBROMIDE\IPRATROPIUM BROMIDE
     Dosage: 2 DOSAGE FORM, QD (SUSPENSION FOR INHALATION IN PRESSURIZED BOTTLE)
     Dates: start: 20240515, end: 20240515
  12. IPRATROPIUM BROMIDE\FENOTEROL HYDROBROMIDE [Suspect]
     Active Substance: FENOTEROL HYDROBROMIDE\IPRATROPIUM BROMIDE
     Dosage: 4 DOSAGE FORM, QD (SUSPENSION FOR INHALATION IN PRESSURIZED BOTTLE)
     Dates: start: 20240516, end: 20240516
  13. IPRATROPIUM BROMIDE\FENOTEROL HYDROBROMIDE [Suspect]
     Active Substance: FENOTEROL HYDROBROMIDE\IPRATROPIUM BROMIDE
     Dosage: 2 DOSAGE FORM, QD (SUSPENSION FOR INHALATION IN PRESSURIZED BOTTLE)
     Dates: start: 20240517, end: 20240518
  14. OXAZEPAM [Suspect]
     Active Substance: OXAZEPAM
     Indication: Anxiety
     Dosage: 5 MILLIGRAM, QD
     Route: 048
     Dates: start: 20240515, end: 20240515
  15. OXAZEPAM [Suspect]
     Active Substance: OXAZEPAM
     Dosage: 10 MILLIGRAM, QD
     Route: 048
     Dates: start: 20240517, end: 20240517

REACTIONS (1)
  - Fall [Recovered/Resolved with Sequelae]

NARRATIVE: CASE EVENT DATE: 20240518
